FAERS Safety Report 5852945-3 (Version None)
Quarter: 2008Q3

REPORT INFORMATION
  Report Type: 
  Country: None (occurrence: None)
  Receive Date: 20080821
  Receipt Date: 20080819
  Transmission Date: 20090109
  Serious: Yes (Other)
  Sender: FDA-Public Use
  Company Number: US-BAYER-200825584NA

PATIENT
  Age: 60 Year
  Sex: Female
  Weight: 100 kg

DRUGS (3)
  1. LEUKINE [Suspect]
     Indication: COLONY STIMULATING FACTOR PROPHYLAXIS
     Route: 058
     Dates: start: 20080610, end: 20080612
  2. RITUXAN [Concomitant]
     Indication: LYMPHOMA
  3. ZEVALIN [Concomitant]
     Indication: LYMPHOMA

REACTIONS (3)
  - DIZZINESS [None]
  - SYNCOPE [None]
  - VISION BLURRED [None]
